FAERS Safety Report 22332586 (Version 2)
Quarter: 2023Q2

REPORT INFORMATION
  Report Type: Spontaneous
  Country: US (occurrence: US)
  Receive Date: 20230517
  Receipt Date: 20230622
  Transmission Date: 20230721
  Serious: No
  Sender: FDA-Public Use
  Company Number: US-TAKEDA-2023TUS048546

PATIENT

DRUGS (1)
  1. HYQVIA [Suspect]
     Active Substance: HUMAN IMMUNOGLOBULIN G\HYALURONIDASE RECOMBINANT HUMAN
     Indication: Product used for unknown indication
     Dosage: UNK
     Route: 042

REACTIONS (9)
  - Blood immunoglobulin G decreased [Unknown]
  - Infection [Unknown]
  - Illness [Unknown]
  - Impaired quality of life [Unknown]
  - Insurance issue [Unknown]
  - Ear pain [Unknown]
  - Pyrexia [Unknown]
  - Cough [Unknown]
  - Asthma [Unknown]
